FAERS Safety Report 4285926-4 (Version None)
Quarter: 2004Q1

REPORT INFORMATION
  Report Type: 
  Country: None (occurrence: None)
  Receive Date: 20040205
  Receipt Date: 20040123
  Transmission Date: 20041129
  Serious: Yes (Disabling)
  Sender: FDA-Public Use
  Company Number: ES-GLAXOSMITHKLINE-B0321039A

PATIENT
  Age: 45 Year
  Sex: Female
  Weight: 70 kg

DRUGS (1)
  1. ZYNTABAC [Suspect]
     Indication: SMOKING CESSATION THERAPY
     Dosage: 150MG PER DAY
     Route: 048
     Dates: start: 20030502, end: 20030512

REACTIONS (7)
  - CHROMATOPSIA [None]
  - CONSTIPATION [None]
  - DYSGEUSIA [None]
  - NEURALGIA [None]
  - THIRST [None]
  - VERTIGO [None]
  - VISUAL DISTURBANCE [None]
